FAERS Safety Report 6437471-5 (Version None)
Quarter: 2009Q4

REPORT INFORMATION
  Report Type: 
  Country: None (occurrence: None)
  Receive Date: 20091112
  Receipt Date: 20091109
  Transmission Date: 20100525
  Serious: Yes (Death)
  Sender: FDA-Public Use
  Company Number: PHHY2009DE49375

PATIENT
  Sex: Female
  Weight: 64 kg

DRUGS (4)
  1. ALISKIREN ALI+ [Suspect]
     Indication: HYPERTENSION
     Dosage: UNK
     Dates: start: 20081007
  2. ORAL ANTIDIABETICS [Concomitant]
     Indication: DIABETES MELLITUS
  3. BETA BLOCKING AGENTS [Concomitant]
  4. PLATELET AGGREGATION INHIBITORS [Concomitant]

REACTIONS (1)
  - DEATH [None]
